FAERS Safety Report 9484824 (Version 2)
Quarter: 2013Q4

REPORT INFORMATION
  Report Type: Spontaneous
  Country: KP (occurrence: KR)
  Receive Date: 20130828
  Receipt Date: 20131002
  Transmission Date: 20140711
  Serious: Yes (Other)
  Sender: FDA-Public Use
  Company Number: KP-INCYTE CORPORATION-2013IN001934

PATIENT
  Sex: Male
  Weight: 79 kg

DRUGS (7)
  1. INC424 [Suspect]
     Indication: MYELOFIBROSIS
     Dosage: 10 MG, BID
     Route: 048
     Dates: start: 20120308, end: 20120808
  2. INC424 [Suspect]
     Dosage: 20 MG, BID
     Route: 048
     Dates: start: 20120925, end: 20120925
  3. INC424 [Suspect]
     Dosage: 15 MG, BID
     Route: 048
     Dates: start: 20130309, end: 20130309
  4. MUCOSTA [Concomitant]
     Dosage: UNK
     Dates: start: 20120927
  5. ZYLORIC [Concomitant]
     Dosage: UNK
     Dates: start: 20130418
  6. LEGABIN [Concomitant]
     Dosage: UNK
     Dates: start: 20130325
  7. HARNAL [Concomitant]
     Dosage: 0.2 MG, UNK
     Dates: start: 20130718

REACTIONS (1)
  - Lymph node tuberculosis [Recovering/Resolving]
